FAERS Safety Report 10638449 (Version 1)
Quarter: 2014Q4

REPORT INFORMATION
  Report Type: Spontaneous
  Country: GB (occurrence: GB)
  Receive Date: 20141208
  Receipt Date: 20141208
  Transmission Date: 20150529
  Serious: Yes (Other)
  Sender: FDA-Public Use
  Company Number: GB-ACTAVIS-2014-26121

PATIENT
  Age: 48 Year
  Sex: Male

DRUGS (1)
  1. TEMAZEPAM. [Suspect]
     Active Substance: TEMAZEPAM
     Indication: NERVOUS SYSTEM DISORDER
     Dosage: 20 DF, DAILY - 400 MILLIGRAM DAILY; 20 X 20 MG TABLETS PER DAY, TAKEN FOR A ^WHILE^
     Route: 048

REACTIONS (3)
  - Off label use [Unknown]
  - Seizure [Unknown]
  - Drug ineffective [Unknown]

NARRATIVE: CASE EVENT DATE: 201411
